FAERS Safety Report 6110891-4 (Version None)
Quarter: 2009Q1

REPORT INFORMATION
  Report Type: 
  Country: None (occurrence: None)
  Receive Date: 20090310
  Receipt Date: 20090310
  Transmission Date: 20090719
  Serious: Yes (Other)
  Sender: FDA-Public Use
  Company Number: None

PATIENT
  Age: 23 Year
  Sex: Male
  Weight: 97.5234 kg

DRUGS (2)
  1. ACETAZOLAMIDE [Suspect]
     Indication: HYPOKALAEMIA
     Dosage: 1/2 TABLET EVERY 6 HOURS PO
     Route: 048
     Dates: start: 20090110, end: 20090303
  2. ACETAZOLAMIDE [Suspect]
     Indication: PARALYSIS
     Dosage: 1/2 TABLET EVERY 6 HOURS PO
     Route: 048
     Dates: start: 20090110, end: 20090303

REACTIONS (3)
  - HYPOKALAEMIA [None]
  - MEDICATION ERROR [None]
  - PARALYSIS [None]
